FAERS Safety Report 10971709 (Version 8)
Quarter: 2017Q3

REPORT INFORMATION
  Report Type: Report from Study
  Country: BR (occurrence: BR)
  Receive Date: 20150331
  Receipt Date: 20170714
  Transmission Date: 20171127
  Serious: Yes (Hospitalization, Other)
  Sender: FDA-Public Use
  Company Number: PHHY2015BR036141

PATIENT
  Sex: Male
  Weight: 70 kg

DRUGS (3)
  1. SANDOSTATIN LAR DEPOT [Suspect]
     Active Substance: OCTREOTIDE ACETATE
     Indication: COLON CANCER
  2. INTERFERON ALFA NOS [Suspect]
     Active Substance: INTERFERON ALFA-2A OR INTERFERON ALFA-2B
     Indication: LIVER DISORDER
     Dosage: UNK (MON, WED AND FRI)
     Route: 058
  3. SANDOSTATIN LAR DEPOT [Suspect]
     Active Substance: OCTREOTIDE ACETATE
     Indication: HEPATIC NEOPLASM
     Dosage: 30 MG, QMO (ONCE A MONTH)
     Route: 030

REACTIONS (14)
  - Weight decreased [Recovered/Resolved]
  - Hyperhidrosis [Unknown]
  - Eating disorder [Unknown]
  - Malignant neoplasm progression [Unknown]
  - Cardiomegaly [Unknown]
  - Malaise [Recovering/Resolving]
  - Pain [Unknown]
  - Dyspnoea [Recovering/Resolving]
  - Cardiac failure [Recovering/Resolving]
  - Atrioventricular block [Unknown]
  - Pulmonary oedema [Unknown]
  - Memory impairment [Unknown]
  - Arrhythmia [Unknown]
  - Asthenia [Unknown]

NARRATIVE: CASE EVENT DATE: 2013
